FAERS Safety Report 13026307 (Version 3)
Quarter: 2017Q1

REPORT INFORMATION
  Report Type: Report from Study
  Country: DE (occurrence: DE)
  Receive Date: 20161214
  Receipt Date: 20170116
  Transmission Date: 20170428
  Serious: Yes (Hospitalization, Other)
  Sender: FDA-Public Use
  Company Number: DE-JNJFOC-20161209569

PATIENT
  Age: 14 Year
  Sex: Female
  Weight: 50.6 kg

DRUGS (5)
  1. REMICADE [Suspect]
     Active Substance: INFLIXIMAB
     Indication: CROHN^S DISEASE
     Route: 042
     Dates: start: 20150615, end: 201612
  2. 5-ASA [Concomitant]
     Active Substance: MESALAMINE
     Route: 048
  3. 5-ASA [Concomitant]
     Active Substance: MESALAMINE
     Route: 054
  4. PURINETHOL [Concomitant]
     Active Substance: MERCAPTOPURINE
     Route: 065
  5. PREDNISONE. [Concomitant]
     Active Substance: PREDNISONE
     Route: 065

REACTIONS (1)
  - Colitis ulcerative [Not Recovered/Not Resolved]

NARRATIVE: CASE EVENT DATE: 20161123
